FAERS Safety Report 17728345 (Version 1)
Quarter: 2020Q2

REPORT INFORMATION
  Report Type: Spontaneous
  Country: ES (occurrence: ES)
  Receive Date: 20200430
  Receipt Date: 20200430
  Transmission Date: 20200714
  Serious: Yes (Hospitalization)
  Sender: FDA-Public Use
  Company Number: ES-ACCORD-180195

PATIENT
  Age: 58 Year
  Sex: Male
  Weight: 88 kg

DRUGS (2)
  1. COLECALCIFEROL [Interacting]
     Active Substance: CHOLECALCIFEROL
     Indication: PRODUCT USED FOR UNKNOWN INDICATION
     Dosage: 0.266 MG AMPOULES
     Route: 048
     Dates: start: 2018
  2. PARICALCITOL. [Suspect]
     Active Substance: PARICALCITOL
     Indication: HYPERPARATHYROIDISM
     Route: 048
     Dates: start: 2009

REACTIONS (3)
  - Hypercalcaemia [Recovered/Resolved]
  - Chronic kidney disease [Recovered/Resolved]
  - Drug interaction [Unknown]

NARRATIVE: CASE EVENT DATE: 20190917
